FAERS Safety Report 5244019-X (Version None)
Quarter: 2007Q1

REPORT INFORMATION
  Report Type: 
  Country: None (occurrence: None)
  Receive Date: 20070222
  Receipt Date: 20070215
  Transmission Date: 20070707
  Serious: Yes (Hospitalization)
  Sender: FDA-Public Use
  Company Number: US-BAYER-200710531BWH

PATIENT
  Age: 28 Year
  Sex: Male
  Weight: 79 kg

DRUGS (3)
  1. ADALAT [Suspect]
     Indication: HYPERTENSION
     Dosage: TOTAL DAILY DOSE: 90 MG
     Route: 048
  2. MOTRIN [Suspect]
     Indication: SWELLING
     Dosage: TOTAL DAILY DOSE: 1800 MG
     Route: 048
     Dates: start: 19950329, end: 19950416
  3. MOTRIN [Suspect]
     Dosage: TOTAL DAILY DOSE: 1800 MG
     Route: 048
     Dates: start: 19950424, end: 19950523

REACTIONS (5)
  - APPENDICECTOMY [None]
  - BLOOD PRESSURE INADEQUATELY CONTROLLED [None]
  - HYPERTENSION [None]
  - RENAL DISORDER [None]
  - RENAL FAILURE ACUTE [None]
